FAERS Safety Report 4976553-1 (Version None)
Quarter: 2006Q2

REPORT INFORMATION
  Report Type: 
  Country: None (occurrence: None)
  Receive Date: 20060419
  Receipt Date: 20051013
  Transmission Date: 20061013
  Serious: Yes (Death)
  Sender: FDA-Public Use
  Company Number: PR-MERCK-0510USA07404

PATIENT
  Age: 35 Year
  Sex: Female
  Weight: 59 kg

DRUGS (1)
  1. VIOXX [Suspect]
     Indication: DYSMENORRHOEA
     Route: 048
     Dates: start: 20010101, end: 20031009

REACTIONS (2)
  - CEREBROVASCULAR ACCIDENT [None]
  - HEADACHE [None]
